FAERS Safety Report 10907486 (Version 1)
Quarter: 2015Q1

REPORT INFORMATION
  Report Type: Spontaneous
  Country: US (occurrence: None)
  Receive Date: 20150309
  Receipt Date: 20150309
  Transmission Date: 20150721
  Serious: Yes (Hospitalization)
  Sender: FDA-Public Use
  Company Number: None

PATIENT
  Age: 60 Year
  Sex: Male
  Weight: 93 kg

DRUGS (1)
  1. BEVACIZUMAB (RHUMAB VEGF) [Suspect]
     Active Substance: BEVACIZUMAB
     Dates: end: 20150120

REACTIONS (12)
  - Somnolence [None]
  - Anxiety [None]
  - Malignant neoplasm progression [None]
  - Pneumonia [None]
  - Hypertension [None]
  - Hyperkalaemia [None]
  - Confusional state [None]
  - Dyspnoea [None]
  - Metastatic renal cell carcinoma [None]
  - Pericardial effusion [None]
  - Pyrexia [None]
  - Blood creatinine increased [None]

NARRATIVE: CASE EVENT DATE: 20150222
